FAERS Safety Report 7028690-8 (Version None)
Quarter: 2010Q4

REPORT INFORMATION
  Report Type: 
  Country: None (occurrence: None)
  Receive Date: 20101005
  Receipt Date: 20100927
  Transmission Date: 20110411
  Serious: Yes (Other)
  Sender: FDA-Public Use
  Company Number: US-AMGEN-QUU418364

PATIENT
  Sex: Female

DRUGS (7)
  1. ENBREL [Suspect]
     Indication: RHEUMATOID ARTHRITIS
     Route: 058
     Dates: start: 20040101, end: 20070101
  2. ORTHO-CEPT [Concomitant]
  3. VITAMIN D [Concomitant]
  4. CALCIUM [Concomitant]
  5. MULTI-VITAMINS [Concomitant]
  6. MEDROL [Concomitant]
  7. FOLIC ACID [Concomitant]

REACTIONS (10)
  - CERVICAL POLYP [None]
  - DEPRESSION [None]
  - FOETAL MALPRESENTATION [None]
  - FORCEPS DELIVERY [None]
  - GESTATIONAL HYPERTENSION [None]
  - PLACENTAL DISORDER [None]
  - RHEUMATOID ARTHRITIS [None]
  - VACUUM EXTRACTOR DELIVERY [None]
  - VAGINAL HAEMORRHAGE [None]
  - VAGINITIS BACTERIAL [None]
